FAERS Safety Report 9720294 (Version 1)
Quarter: 2013Q4

REPORT INFORMATION
  Report Type: Spontaneous
  Country: US (occurrence: US)
  Receive Date: 20131129
  Receipt Date: 20131129
  Transmission Date: 20140711
  Serious: No
  Sender: FDA-Public Use
  Company Number: US-009507513-1311USA011493

PATIENT
  Sex: Male

DRUGS (1)
  1. PROVENTIL [Suspect]
     Indication: ASTHMA
     Dosage: UNK; INHALATION AEROSOL HFA 200 METERED INHALATIONS
     Route: 055
     Dates: start: 2007

REACTIONS (4)
  - Panic reaction [Unknown]
  - Dyspnoea [Unknown]
  - Drug dose omission [Unknown]
  - Product container issue [Unknown]
